FAERS Safety Report 24861498 (Version 2)
Quarter: 2025Q4

REPORT INFORMATION
  Report Type: Report from Study
  Country: US (occurrence: US)
  Receive Date: 20250120
  Receipt Date: 20251205
  Transmission Date: 20260118
  Serious: Yes (Death)
  Sender: TEVA
  Company Number: US-TEVA-VS-3288022

PATIENT

DRUGS (7)
  1. DEXAMETHASONE [Suspect]
     Active Substance: DEXAMETHASONE
     Indication: Plasma cell myeloma refractory
     Dosage: 12MG ON DAYS 1-4, 7-10, 13-16, 19-22, 25-28
     Route: 065
  2. BORTEZOMIB [Suspect]
     Active Substance: BORTEZOMIB
     Indication: Plasma cell myeloma refractory
     Dosage: 1.0 MG/M2 ON DAYS 1, 4, 7, 10, 13,16,19, 22,25,28
     Route: 065
  3. THALIDOMIDE [Suspect]
     Active Substance: THALIDOMIDE
     Indication: Plasma cell myeloma refractory
     Dosage: 100MG DAYS 1-28
     Route: 065
  4. VINCRISTINE [Suspect]
     Active Substance: VINCRISTINE
     Indication: Plasma cell myeloma refractory
     Dosage: 0.07MG DAILY DOSE BY CONTINUOUS INFUSION FOR 28 DAYS
     Route: 065
  5. DOXORUBICIN [Suspect]
     Active Substance: DOXORUBICIN
     Indication: Plasma cell myeloma refractory
     Dosage: CONTINUOUS 28 DAY INFUSION OF DOXORUBICIN 1.0MG/M2 (0.5MG/M2 FOR EJECTION FRACTION {40%)
     Route: 065
  6. ARSENIC TRIOXIDE [Suspect]
     Active Substance: ARSENIC TRIOXIDE
     Indication: Plasma cell myeloma refractory
     Dosage: 0.1MG/KG ON EACH DAY AFTER BORTEZOMIB
     Route: 065
  7. CISPLATIN [Suspect]
     Active Substance: CISPLATIN
     Indication: Plasma cell myeloma refractory
     Dosage: 1.0MG/M2 (0.5MG/M2 FOR CREATININE }2MG/DL), CISPLATINUM
     Route: 065

REACTIONS (1)
  - Infection [Fatal]
